FAERS Safety Report 4360113-X (Version None)
Quarter: 2004Q2

REPORT INFORMATION
  Report Type: 
  Country: None (occurrence: None)
  Receive Date: 20040519
  Receipt Date: 20040507
  Transmission Date: 20050107
  Serious: Yes (Hospitalization)
  Sender: FDA-Public Use
  Company Number: JP-BRISTOL-MYERS SQUIBB COMPANY-12582383

PATIENT
  Age: 83 Year
  Sex: Female

DRUGS (9)
  1. TAXOL [Suspect]
     Indication: BREAST CANCER STAGE III
     Dosage: THERAPY DATES: 22-JUL-2003 TO 10-FEB-2004
     Route: 042
     Dates: start: 20040210, end: 20040210
  2. CLARITHROMYCIN [Suspect]
     Route: 048
     Dates: start: 20040216
  3. DECADRON [Concomitant]
     Route: 042
     Dates: start: 20030722, end: 20040210
  4. BISMILLA [Concomitant]
     Route: 042
     Dates: start: 20030722, end: 20040210
  5. ZOFRAN [Concomitant]
     Route: 042
     Dates: start: 20030722, end: 20040210
  6. NOVOLIN R [Concomitant]
     Route: 058
  7. HUSCODE [Concomitant]
     Route: 048
  8. DEXTROMETHORPHAN HYDROBROMIDE [Concomitant]
     Route: 048
  9. GASTER [Concomitant]
     Route: 042
     Dates: start: 20030722, end: 20040210

REACTIONS (5)
  - ACUTE RESPIRATORY DISTRESS SYNDROME [None]
  - ANOREXIA [None]
  - INTERSTITIAL LUNG DISEASE [None]
  - MALAISE [None]
  - NEUROPATHY PERIPHERAL [None]
